FAERS Safety Report 16469605 (Version 1)
Quarter: 2019Q2

REPORT INFORMATION
  Report Type: Spontaneous
  Country: US (occurrence: US)
  Receive Date: 20190624
  Receipt Date: 20190624
  Transmission Date: 20190711
  Serious: Yes (Other)
  Sender: FDA-Public Use
  Company Number: US-HORIZON-DUE-0364-2019

PATIENT
  Age: 61 Year
  Sex: Female

DRUGS (1)
  1. DUEXIS [Suspect]
     Active Substance: FAMOTIDINE\IBUPROFEN
     Indication: PRODUCT USED FOR UNKNOWN INDICATION
     Dosage: 1 TABLET BY MOUTH 3 TIMES DAILY
     Route: 048

REACTIONS (3)
  - Contraindicated product administered [Unknown]
  - Haematemesis [Unknown]
  - Dyspepsia [Not Recovered/Not Resolved]
